FAERS Safety Report 5529460-X (Version None)
Quarter: 2007Q4

REPORT INFORMATION
  Report Type: 
  Country: None (occurrence: None)
  Receive Date: 20071129
  Receipt Date: 20071119
  Transmission Date: 20080405
  Serious: Yes (Other)
  Sender: FDA-Public Use
  Company Number: FR-ABBOTT-07P-056-0425134-00

PATIENT
  Sex: Female

DRUGS (5)
  1. DEPAKENE [Suspect]
     Indication: PARTIAL SEIZURES
     Route: 048
     Dates: start: 20060301, end: 20070315
  2. PARACETAMOL [Concomitant]
     Indication: DRUG USE FOR UNKNOWN INDICATION
     Route: 048
  3. ARTHROTEC [Concomitant]
     Indication: DRUG USE FOR UNKNOWN INDICATION
     Route: 048
  4. LEVOTHYROXINE SODIUM [Concomitant]
     Indication: THYROIDECTOMY
     Route: 048
     Dates: end: 20051101
  5. LEVOTHYROXINE SODIUM [Concomitant]
     Route: 048
     Dates: start: 20061101, end: 20070101

REACTIONS (9)
  - APHASIA [None]
  - BLOOD ALBUMIN DECREASED [None]
  - COGNITIVE DISORDER [None]
  - DISORIENTATION [None]
  - HYPERCHOLESTEROLAEMIA [None]
  - HYPERTHYROIDISM [None]
  - LEUKOARAIOSIS [None]
  - MEMORY IMPAIRMENT [None]
  - THYROXINE DECREASED [None]
